FAERS Safety Report 7959053-6 (Version None)
Quarter: 2011Q4

REPORT INFORMATION
  Report Type: 
  Country: None (occurrence: None)
  Receive Date: 20111206
  Receipt Date: 20110630
  Transmission Date: 20120403
  Serious: Yes (Other)
  Sender: FDA-Public Use
  Company Number: US-GLAXOSMITHKLINE-A0934002A

PATIENT
  Age: 36 Year
  Sex: Female

DRUGS (3)
  1. CLOZARIL [Concomitant]
  2. LAMICTAL [Suspect]
     Indication: SCHIZOPHRENIA
     Route: 048
     Dates: start: 20110401
  3. YAZ [Concomitant]

REACTIONS (6)
  - OROPHARYNGEAL BLISTERING [None]
  - STEVENS-JOHNSON SYNDROME [None]
  - OROPHARYNGEAL PAIN [None]
  - WHITE BLOOD CELL COUNT DECREASED [None]
  - FATIGUE [None]
  - INFLUENZA LIKE ILLNESS [None]
